FAERS Safety Report 21576868 (Version 1)
Quarter: 2022Q4

REPORT INFORMATION
  Report Type: Spontaneous
  Country: CA (occurrence: CA)
  Receive Date: 20221110
  Receipt Date: 20221110
  Transmission Date: 20230113
  Serious: Yes (Other)
  Sender: FDA-Public Use
  Company Number: None

PATIENT
  Age: 65 Year
  Sex: Female

DRUGS (1)
  1. METHOTREXATE [Suspect]
     Active Substance: METHOTREXATE
     Indication: Product used for unknown indication
     Dosage: 1 EVERY 1 WEEKS, THERAPY DURATION: 973.0
     Route: 048

REACTIONS (8)
  - Antisynthetase syndrome [Unknown]
  - C-reactive protein increased [Unknown]
  - Drug ineffective [Unknown]
  - Interstitial lung disease [Unknown]
  - Oedema peripheral [Unknown]
  - Rheumatoid factor positive [Unknown]
  - Synovitis [Unknown]
  - Tenosynovitis [Unknown]
